FAERS Safety Report 10924345 (Version 1)
Quarter: 2015Q1

REPORT INFORMATION
  Report Type: Spontaneous
  Country: US (occurrence: None)
  Receive Date: 20150129
  Receipt Date: 20150129
  Transmission Date: 20150721
  Serious: Yes (Other)
  Sender: FDA-Public Use
  Company Number: 099384

PATIENT
  Age: 65 Year
  Sex: Female
  Weight: 59.1 kg

DRUGS (13)
  1. PHENERGAN [Concomitant]
     Active Substance: PROMETHAZINE HYDROCHLORIDE
  2. ASPIRIN. [Concomitant]
     Active Substance: ASPIRIN
  3. KEPPRA [Suspect]
     Active Substance: LEVETIRACETAM
     Indication: GENERALISED TONIC-CLONIC SEIZURE
     Dosage: UPTO 3000MG
  4. MIRALAX (MACROGOL) [Concomitant]
  5. METANEX [Concomitant]
  6. VIMPAT [Suspect]
     Active Substance: LACOSAMIDE
     Indication: GENERALISED TONIC-CLONIC SEIZURE
     Dates: start: 2013
  7. SYNTHROID [Concomitant]
     Active Substance: LEVOTHYROXINE SODIUM
  8. ANTACID (CALCIUM CARBONATE) [Concomitant]
     Active Substance: CALCIUM CARBONATE
  9. LINZESS [Concomitant]
     Active Substance: LINACLOTIDE
  10. CITROCAL (CALCIUM CITRATE) [Concomitant]
  11. KEPPRA [Suspect]
     Active Substance: LEVETIRACETAM
     Indication: EPILEPSY
     Dosage: UPTO 3000MG
  12. NITROSTAT (GLYCERYL TRINITRATE) [Concomitant]
  13. VIMPAT [Suspect]
     Active Substance: LACOSAMIDE
     Indication: EPILEPSY
     Dates: start: 2013

REACTIONS (21)
  - Treatment noncompliance [None]
  - Somnolence [None]
  - Drug ineffective [None]
  - Blood pressure increased [None]
  - Loss of consciousness [None]
  - Weight increased [None]
  - Fatigue [None]
  - Generalised tonic-clonic seizure [None]
  - Dizziness [None]
  - Swelling [None]
  - Seizure [None]
  - Foot fracture [None]
  - Vision blurred [None]
  - Scar [None]
  - Contusion [None]
  - Nausea [None]
  - Chest pain [None]
  - Fall [None]
  - Pruritus [None]
  - Blood pressure fluctuation [None]
  - Erythema [None]

NARRATIVE: CASE EVENT DATE: 201305
